FAERS Safety Report 11966625 (Version 1)
Quarter: 2016Q1

REPORT INFORMATION
  Report Type: Spontaneous
  Country: US (occurrence: US)
  Receive Date: 20160127
  Receipt Date: 20160127
  Transmission Date: 20160526
  Serious: No
  Sender: FDA-Public Use
  Company Number: US-BAYER-2016-016031

PATIENT
  Sex: Female
  Weight: 54.42 kg

DRUGS (3)
  1. ONE A DAY WOMEN^S 50+ HEALTHY ADVANTAGE [Concomitant]
     Active Substance: VITAMINS
     Dosage: UNK
     Route: 048
  2. CLARITIN [Suspect]
     Active Substance: LORATADINE
     Indication: SKIN IRRITATION
     Dosage: 1 DF, ONCE
     Route: 048
     Dates: start: 20160125
  3. CLARITIN [Suspect]
     Active Substance: LORATADINE
     Indication: PRURITUS

REACTIONS (1)
  - Product use issue [None]

NARRATIVE: CASE EVENT DATE: 20160125
